FAERS Safety Report 4700587-5 (Version None)
Quarter: 2005Q2

REPORT INFORMATION
  Report Type: 
  Country: None (occurrence: None)
  Receive Date: 20050627
  Receipt Date: 20050615
  Transmission Date: 20051028
  Serious: Yes (Other)
  Sender: FDA-Public Use
  Company Number: 2005-06-1072

PATIENT
  Age: 44 Year
  Sex: Female

DRUGS (3)
  1. INTRON A [Suspect]
     Indication: CHRONIC MYELOID LEUKAEMIA
     Dosage: SEE IMAGE
     Dates: start: 19911201, end: 19921001
  2. INTRON A [Suspect]
     Indication: CHRONIC MYELOID LEUKAEMIA
     Dosage: SEE IMAGE
     Dates: end: 19921001
  3. BUSULFAN [Concomitant]

REACTIONS (3)
  - ALLOGENIC BONE MARROW TRANSPLANTATION THERAPY [None]
  - BONE MARROW DEPRESSION [None]
  - THERAPY NON-RESPONDER [None]
